FAERS Safety Report 4730244-0 (Version None)
Quarter: 2005Q3

REPORT INFORMATION
  Report Type: 
  Country: None (occurrence: None)
  Receive Date: 20050728
  Receipt Date: 20050718
  Transmission Date: 20060218
  Serious: Yes (Death)
  Sender: FDA-Public Use
  Company Number: 2005104566

PATIENT
  Sex: Male

DRUGS (12)
  1. PREDNISOLONE [Suspect]
     Indication: ILL-DEFINED DISORDER
     Dosage: 30 MG (5 MG, 6 IN 1 D)
  2. AMLODIPINE [Suspect]
     Indication: ILL-DEFINED DISORDER
     Dosage: 10 MG (5 MG, 2 IN 1D)
  3. TIOTROPIUM (TIOTROPIUM) [Suspect]
     Indication: ILL-DEFINED DISORDER
     Dosage: 18 MCG (18 MCG, 1 IN 1 D), INHALATION
  4. COMBIVENT [Suspect]
     Indication: ILL-DEFINED DISORDER
     Dosage: 10 ML (2.5 ML, 4 IN 1 D) , INHALATION
     Route: 055
  5. SERETIDE             (FLUTICASONE PROPIONATE, SALMETEROL XINAFOATE) [Suspect]
     Indication: ILL-DEFINED DISORDER
     Dosage: (2 IN 1 D)
  6. SODIUM CHLORIDE 0.9% [Suspect]
     Indication: ILL-DEFINED DISORDER
  7. CIPROFLOXACIN [Concomitant]
  8. BACTRIM [Concomitant]
  9. FUROSEMIDE [Concomitant]
  10. INSTILLAGEL        (LIDOCAINE HYDROCHLORIDE) [Concomitant]
  11. CLOTRIMAZOLE [Concomitant]
  12. ALL OTHER THERAPEUTIC PRODUCTS [Concomitant]

REACTIONS (2)
  - CARDIAC FAILURE CONGESTIVE [None]
  - CHRONIC OBSTRUCTIVE PULMONARY DISEASE [None]
